FAERS Safety Report 5424443-2 (Version None)
Quarter: 2007Q3

REPORT INFORMATION
  Report Type: 
  Country: None (occurrence: None)
  Receive Date: 20070822
  Receipt Date: 20070807
  Transmission Date: 20080115
  Serious: Yes (Hospitalization)
  Sender: FDA-Public Use
  Company Number: ENT-2007-0128

PATIENT
  Sex: Male

DRUGS (1)
  1. COMTAN [Suspect]
     Indication: DRUG EFFECT DECREASED
     Dosage: ORAL
     Route: 048

REACTIONS (2)
  - PNEUMONIA ASPIRATION [None]
  - SOMNOLENCE [None]
